FAERS Safety Report 5404279-9 (Version None)
Quarter: 2007Q3

REPORT INFORMATION
  Report Type: 
  Country: None (occurrence: None)
  Receive Date: 20070731
  Receipt Date: 20070716
  Transmission Date: 20080115
  Serious: Yes (Hospitalization)
  Sender: FDA-Public Use
  Company Number: 141440USA

PATIENT
  Age: 74 Year
  Sex: Male
  Weight: 77.1115 kg

DRUGS (9)
  1. FLUOROURACIL [Suspect]
     Indication: COLORECTAL CANCER METASTATIC
     Dosage: 400 MG/M2, 1 IN 2
     Dates: start: 20041101, end: 20050110
  2. IRINOTECAN HCL [Suspect]
     Indication: COLORECTAL CANCER METASTATIC
     Dosage: 180 MG, 1 IN 2 WEEK,INTRAVENOUS (NOT OTHERWISE SPECIFIED)
     Route: 042
     Dates: start: 20041101, end: 20050110
  3. CALCIUM FOLINATE [Suspect]
     Indication: COLORECTAL CANCER METASTATIC
     Dosage: 772 MG (400 MG/M2)
     Dates: start: 20041101, end: 20050110
  4. BEVACIZUMAB [Suspect]
     Indication: COLORECTAL CANCER METASTATIC
     Dosage: 5MG/KG, 1 IN 2 WK, INTRAVENOUS
     Route: 042
     Dates: start: 20041101, end: 20050110
  5. ONDANSETRON [Concomitant]
  6. DEXAMETHASONE 0.5MG TAB [Concomitant]
  7. LORAZEPAM [Concomitant]
  8. GRANISETRON [Concomitant]
  9. ONDANSETRON [Concomitant]

REACTIONS (4)
  - DEHYDRATION [None]
  - HYPOTENSION [None]
  - NAUSEA [None]
  - VOMITING [None]
